FAERS Safety Report 9182136 (Version 1)
Quarter: 2013Q1

REPORT INFORMATION
  Report Type: Spontaneous
  Country: MY (occurrence: MY)
  Receive Date: 20130322
  Receipt Date: 20130322
  Transmission Date: 20140127
  Serious: Yes (Death, Life-Threatening, Other)
  Sender: FDA-Public Use
  Company Number: MY-PFIZER INC-2013090368

PATIENT
  Age: 1 Year
  Sex: Female

DRUGS (7)
  1. VANCOMYCIN HCL [Suspect]
     Indication: INFECTION
     Dosage: 85 MG, 4X/DAY
     Route: 042
     Dates: start: 20080610
  2. NOOTROPIL [Suspect]
     Indication: CHOREA
     Dosage: 100 MG, 2X/DAY
     Route: 048
     Dates: start: 20080531
  3. EPILIM [Concomitant]
     Indication: CHOREA
     Dosage: 50 MG, 2X/DAY
     Route: 042
     Dates: start: 20080531, end: 20080605
  4. MAXIPEME [Concomitant]
     Indication: INFECTION
     Dosage: 250 MG, 3X/DAY
     Route: 042
     Dates: start: 20080602, end: 20080605
  5. HALOPERIDOL [Concomitant]
     Indication: CHOREA
     Dosage: 0.05 MG, 2X/DAY
     Dates: start: 20080603, end: 20080607
  6. ROCEPHINE [Concomitant]
     Indication: INFECTION
     Dosage: 420 MG, 2X/DAY
     Route: 042
     Dates: start: 20080607
  7. LASIX [Concomitant]
     Indication: RENAL FAILURE
     Dosage: 10 MG, 3X/DAY
     Dates: start: 20080611

REACTIONS (2)
  - Renal impairment [Fatal]
  - Respiratory distress [Fatal]
